FAERS Safety Report 9789789 (Version 2)
Quarter: 2014Q1

REPORT INFORMATION
  Report Type: Spontaneous
  Country: IT (occurrence: IT)
  Receive Date: 20131231
  Receipt Date: 20140201
  Transmission Date: 20141002
  Serious: Yes (Other)
  Sender: FDA-Public Use
  Company Number: IT-ACCORD-021023

PATIENT
  Age: 72 Year
  Sex: Female

DRUGS (2)
  1. GEMCITABINE/GEMCITABINE HYDROCHLORIDE [Suspect]
     Indication: BLADDER CANCER
     Dosage: ^1 G POWDER FOR SOLUTION FOR?INFUSION^ 1 GLASS AMPOULE OF 50 ML
     Route: 042
     Dates: start: 20131029, end: 20131108
  2. CARBOPLATIN [Suspect]
     Indication: BLADDER CANCER
     Dosage: TEVA^S CARBOPLATIN
     Route: 042
     Dates: start: 20131029, end: 20131108

REACTIONS (4)
  - Thrombocytopenia [Unknown]
  - Neutropenia [Unknown]
  - Anaemia [Unknown]
  - Leukopenia [Unknown]
